FAERS Safety Report 25373755 (Version 1)
Quarter: 2025Q2

REPORT INFORMATION
  Report Type: Spontaneous
  Country: AT (occurrence: AT)
  Receive Date: 20250529
  Receipt Date: 20250529
  Transmission Date: 20250717
  Serious: Yes (Other)
  Sender: MYLAN
  Company Number: AT-MYLANLABS-2025M1045258

PATIENT
  Age: 43 Year
  Sex: Female

DRUGS (20)
  1. EPINEPHRINE [Suspect]
     Active Substance: EPINEPHRINE
     Indication: Intraocular lens implant
  2. EPINEPHRINE [Suspect]
     Active Substance: EPINEPHRINE
     Route: 065
  3. EPINEPHRINE [Suspect]
     Active Substance: EPINEPHRINE
     Route: 065
  4. EPINEPHRINE [Suspect]
     Active Substance: EPINEPHRINE
  5. BENOXINATE [Concomitant]
     Active Substance: BENOXINATE
     Indication: Intraocular lens implant
  6. BENOXINATE [Concomitant]
     Active Substance: BENOXINATE
     Route: 065
  7. BENOXINATE [Concomitant]
     Active Substance: BENOXINATE
     Route: 065
  8. BENOXINATE [Concomitant]
     Active Substance: BENOXINATE
  9. LIDOCAINE HYDROCHLORIDE [Concomitant]
     Active Substance: LIDOCAINE HYDROCHLORIDE
     Indication: Intraocular lens implant
  10. LIDOCAINE HYDROCHLORIDE [Concomitant]
     Active Substance: LIDOCAINE HYDROCHLORIDE
     Route: 065
  11. LIDOCAINE HYDROCHLORIDE [Concomitant]
     Active Substance: LIDOCAINE HYDROCHLORIDE
     Route: 065
  12. LIDOCAINE HYDROCHLORIDE [Concomitant]
     Active Substance: LIDOCAINE HYDROCHLORIDE
  13. HYPROMELLOSES [Concomitant]
     Active Substance: HYPROMELLOSES
     Indication: Intraocular lens implant
  14. HYPROMELLOSES [Concomitant]
     Active Substance: HYPROMELLOSES
     Route: 065
  15. HYPROMELLOSES [Concomitant]
     Active Substance: HYPROMELLOSES
     Route: 065
  16. HYPROMELLOSES [Concomitant]
     Active Substance: HYPROMELLOSES
  17. MIOSTAT [Concomitant]
     Active Substance: CARBACHOL
     Indication: Intraocular lens implant
  18. MIOSTAT [Concomitant]
     Active Substance: CARBACHOL
     Route: 065
  19. MIOSTAT [Concomitant]
     Active Substance: CARBACHOL
     Route: 065
  20. MIOSTAT [Concomitant]
     Active Substance: CARBACHOL

REACTIONS (2)
  - Cystoid macular oedema [Recovered/Resolved]
  - Off label use [Unknown]
